FAERS Safety Report 22102763 (Version 2)
Quarter: 2023Q1

REPORT INFORMATION
  Report Type: Spontaneous
  Country: GB (occurrence: GB)
  Receive Date: 20230316
  Receipt Date: 20230331
  Transmission Date: 20230417
  Serious: Yes (Other)
  Sender: FDA-Public Use
  Company Number: None

PATIENT
  Sex: Female

DRUGS (1)
  1. BUPRENORPHINE HYDROCHLORIDE [Suspect]
     Active Substance: BUPRENORPHINE HYDROCHLORIDE
     Indication: Product used for unknown indication
     Dosage: 2MG;
     Route: 065
     Dates: end: 20230221

REACTIONS (7)
  - Medication error [Unknown]
  - Seizure [Recovered/Resolved]
  - Withdrawal syndrome [Unknown]
  - Choking [Unknown]
  - Photopsia [Unknown]
  - Feeling abnormal [Unknown]
  - Hallucination [Unknown]

NARRATIVE: CASE EVENT DATE: 20230224
